FAERS Safety Report 6340775-8 (Version None)
Quarter: 2009Q3

REPORT INFORMATION
  Report Type: 
  Country: None (occurrence: None)
  Receive Date: 20090904
  Receipt Date: 20090828
  Transmission Date: 20100115
  Serious: Yes (Hospitalization, Other)
  Sender: FDA-Public Use
  Company Number: US-BAYER-200928492NA

PATIENT
  Age: 58 Year
  Sex: Male

DRUGS (4)
  1. AVELOX [Suspect]
     Indication: SINUSITIS
     Dosage: TOTAL DAILY DOSE: 400 MG  UNIT DOSE: 400 MG
     Dates: start: 20090716, end: 20090720
  2. DOXYCYCLINE [Concomitant]
     Indication: LYME DISEASE
     Dosage: TOTAL DAILY DOSE: 200 MG  UNIT DOSE: 100 MG
  3. ASACOL [Concomitant]
     Dosage: TOTAL DAILY DOSE: 1600 MG  UNIT DOSE: 400 MG
  4. MULTI-VITAMIN [Concomitant]

REACTIONS (12)
  - ASTHENIA [None]
  - CHILLS [None]
  - FEAR [None]
  - FURUNCLE [None]
  - HYPERHIDROSIS [None]
  - HYPOTENSION [None]
  - LIP PAIN [None]
  - LIP SWELLING [None]
  - PAIN [None]
  - PYODERMA GANGRENOSUM [None]
  - PYREXIA [None]
  - SKIN LESION [None]
